FAERS Safety Report 5481612-3 (Version None)
Quarter: 2007Q4

REPORT INFORMATION
  Report Type: 
  Country: None (occurrence: None)
  Receive Date: 20071010
  Receipt Date: 20070927
  Transmission Date: 20080405
  Serious: Yes (Hospitalization)
  Sender: FDA-Public Use
  Company Number: US-ELI_LILLY_AND_COMPANY-US200709006669

PATIENT
  Sex: Female

DRUGS (5)
  1. BYETTA [Suspect]
     Indication: TYPE 2 DIABETES MELLITUS
     Dosage: 5 UG, DAILY (1/D)
     Route: 058
     Dates: start: 20060101
  2. BYETTA [Suspect]
     Dosage: 10 UG, 2/D
     Route: 058
     Dates: start: 20060101
  3. BENICAR [Concomitant]
     Indication: BLOOD PRESSURE
     Dosage: UNK, UNKNOWN
     Route: 065
  4. AMARYL [Concomitant]
     Dosage: 4 MG, EACH MORNING
     Route: 048
  5. AVANDIA [Concomitant]
     Indication: DIABETES MELLITUS
     Dosage: 4 MG, DAILY (1/D)
     Route: 048

REACTIONS (9)
  - BLOOD GLUCOSE INCREASED [None]
  - BLOOD PRESSURE DECREASED [None]
  - CHEST PAIN [None]
  - DECREASED APPETITE [None]
  - FATIGUE [None]
  - HEADACHE [None]
  - PARAESTHESIA [None]
  - VISUAL DISTURBANCE [None]
  - WEIGHT DECREASED [None]
